FAERS Safety Report 12807830 (Version 1)
Quarter: 2016Q4

REPORT INFORMATION
  Report Type: Spontaneous
  Country: US (occurrence: US)
  Receive Date: 20161004
  Receipt Date: 20161004
  Transmission Date: 20170207
  Serious: No
  Sender: FDA-Public Use
  Company Number: US-AMGEN-USASP2016092996

PATIENT
  Age: 68 Year
  Sex: Female

DRUGS (1)
  1. XGEVA [Suspect]
     Active Substance: DENOSUMAB
     Indication: OSTEOPENIA
     Dosage: UNK, Q6MO
     Route: 065

REACTIONS (5)
  - Mobility decreased [Unknown]
  - Off label use [Unknown]
  - Pain [Unknown]
  - Fatigue [Unknown]
  - Discomfort [Unknown]
